FAERS Safety Report 15293077 (Version 1)
Quarter: 2018Q3

REPORT INFORMATION
  Report Type: Spontaneous
  Country: US (occurrence: US)
  Receive Date: 20180820
  Receipt Date: 20180820
  Transmission Date: 20181010
  Serious: No
  Sender: FDA-Public Use
  Company Number: US-STRIDES ARCOLAB LIMITED-2018SP006135

PATIENT

DRUGS (8)
  1. PREDNISONE. [Concomitant]
     Active Substance: PREDNISONE
     Dosage: 30 MG, UNKNOWN
     Route: 065
  2. MYCOPHENOLATE MOFETIL. [Suspect]
     Active Substance: MYCOPHENOLATE MOFETIL
     Dosage: 1000 MG, BID
     Route: 065
  3. METHYLPREDNISOLONE. [Concomitant]
     Active Substance: METHYLPREDNISOLONE
     Indication: RENAL AND PANCREAS TRANSPLANT
     Dosage: 250 MG, UNKNOWN
     Route: 065
  4. MYCOPHENOLATE MOFETIL. [Suspect]
     Active Substance: MYCOPHENOLATE MOFETIL
     Indication: RENAL AND PANCREAS TRANSPLANT
     Dosage: 500 MG, BID
     Route: 065
  5. VALGANCICLOVIR. [Concomitant]
     Active Substance: VALGANCICLOVIR
     Indication: RENAL AND PANCREAS TRANSPLANT
     Dosage: UNK
     Route: 065
  6. ANTITHYMOCYTE IMMUNOGLOBULIN (RABBIT) [Concomitant]
     Active Substance: LAPINE T-LYMPHOCYTE IMMUNE GLOBULIN
     Indication: RENAL AND PANCREAS TRANSPLANT
     Dosage: 7.5 MG/KG
     Route: 065
  7. PREDNISONE. [Concomitant]
     Active Substance: PREDNISONE
     Indication: RENAL AND PANCREAS TRANSPLANT
     Dosage: UNK
     Route: 065
  8. TACROLIMUS. [Suspect]
     Active Substance: TACROLIMUS
     Indication: RENAL AND PANCREAS TRANSPLANT
     Dosage: UNK
     Route: 065

REACTIONS (2)
  - Tremor [Unknown]
  - Off label use [Unknown]
